FAERS Safety Report 4818987-1 (Version None)
Quarter: 2005Q4

REPORT INFORMATION
  Report Type: 
  Country: None (occurrence: None)
  Receive Date: 20051102
  Receipt Date: 20051102
  Transmission Date: 20060501
  Serious: Yes (Life-Threatening, Hospitalization)
  Sender: FDA-Public Use
  Company Number: None

PATIENT
  Age: 33 Year
  Sex: Female
  Weight: 113.3993 kg

DRUGS (1)
  1. LAMICTAL [Suspect]
     Indication: BIPOLAR DISORDER
     Dosage: 25MG  ONCE DAILY,  ORALLY
     Route: 048
     Dates: start: 20050824, end: 20050910

REACTIONS (3)
  - DYSPNOEA [None]
  - EATING DISORDER [None]
  - STEVENS-JOHNSON SYNDROME [None]
